FAERS Safety Report 6963948-X (Version None)
Quarter: 2010Q3

REPORT INFORMATION
  Report Type: 
  Country: None (occurrence: None)
  Receive Date: 20100902
  Receipt Date: 20100825
  Transmission Date: 20110219
  Serious: Yes (Other)
  Sender: FDA-Public Use
  Company Number: HU-AMGEN-QUU433914

PATIENT
  Sex: Female
  Weight: 80 kg

DRUGS (10)
  1. NPLATE [Suspect]
     Indication: IDIOPATHIC THROMBOCYTOPENIC PURPURA
     Route: 058
     Dates: start: 20090903, end: 20100823
  2. THYROXIN [Concomitant]
     Route: 048
  3. FUROSEMIDE [Concomitant]
     Route: 048
  4. ALLOPURINOL [Concomitant]
     Route: 048
  5. HYDROCHLOROTHIAZIDE/RAMIPRIL [Concomitant]
     Route: 048
  6. LANSOPRAZOLE [Concomitant]
     Route: 048
  7. UNSPECIFIED MEDICATION [Concomitant]
  8. SPIRONOLACTONE [Concomitant]
     Route: 048
  9. INSULIN HUMAN [Concomitant]
     Route: 058
  10. PREGABALIN [Concomitant]
     Route: 048

REACTIONS (2)
  - BLOOD ALKALINE PHOSPHATASE INCREASED [None]
  - LIVER DISORDER [None]
